FAERS Safety Report 5278961-0 (Version None)
Quarter: 2007Q1

REPORT INFORMATION
  Report Type: 
  Country: None (occurrence: None)
  Receive Date: 20070328
  Receipt Date: 20061120
  Transmission Date: 20070707
  Serious: No
  Sender: FDA-Public Use
  Company Number: US-AMGEN-KDL200779

PATIENT

DRUGS (3)
  1. NEULASTA [Suspect]
     Indication: CHEMOTHERAPY
     Route: 058
     Dates: start: 20061001
  2. TAXOL [Concomitant]
     Route: 065
  3. CARBOPLATIN [Concomitant]
     Route: 065

REACTIONS (3)
  - BONE PAIN [None]
  - MUSCULAR WEAKNESS [None]
  - SENSORY DISTURBANCE [None]
